FAERS Safety Report 8957298 (Version 2)
Quarter: 2012Q4

REPORT INFORMATION
  Report Type: 
  Country: FR (occurrence: FR)
  Receive Date: 20121211
  Receipt Date: 20121224
  Transmission Date: 20130627
  Serious: Yes (Other)
  Sender: FDA-Public Use
  Company Number: FR-ROCHE-1165910

PATIENT
  Age: 50 Year
  Sex: Female

DRUGS (3)
  1. ZELBORAF [Suspect]
     Indication: GLIOBLASTOMA
     Route: 065
  2. ZELBORAF [Suspect]
     Indication: MALIGNANT MELANOMA
  3. AVASTIN [Concomitant]
     Indication: GLIOBLASTOMA

REACTIONS (1)
  - Malignant melanoma [Unknown]
